FAERS Safety Report 9293575 (Version 1)
Quarter: 2013Q2

REPORT INFORMATION
  Report Type: Spontaneous
  Country: BR (occurrence: BR)
  Receive Date: 20130516
  Receipt Date: 20130516
  Transmission Date: 20140414
  Serious: Yes (Other)
  Sender: FDA-Public Use
  Company Number: PHHY2013BR048120

PATIENT
  Age: 82 Year
  Sex: Male

DRUGS (11)
  1. ENTACAPONE [Suspect]
     Indication: PARKINSON^S DISEASE
     Dosage: 200 MG, TID
  2. ENTACAPONE [Suspect]
     Dosage: 200 MG, FOUR TIMES DAILY
  3. AMANTADINE [Concomitant]
     Indication: PARKINSON^S DISEASE
     Dosage: 200 MG, DAILY
  4. LEVODOPA/BENSERAZIDE [Concomitant]
     Indication: PARKINSON^S DISEASE
     Dosage: 0.5 DF, TID
  5. LEVODOPA/BENSERAZIDE [Concomitant]
     Dosage: 1 DF, FOUR TIMES DAILY
  6. SELEGILINE [Concomitant]
     Indication: MOTOR DYSFUNCTION
     Dosage: 10 MG, DAILY
  7. PIRIBEDIL [Concomitant]
     Indication: MOTOR DYSFUNCTION
     Dosage: 100 MG, DAILY
  8. CLONAZEPAM [Concomitant]
     Indication: MOTOR DYSFUNCTION
     Dosage: 0.5 MG AT NIGHT, UNK
  9. SERTRALINE [Concomitant]
     Indication: MOTOR DYSFUNCTION
     Dosage: 50 MG, DAILY
  10. PRAMIPEXOLE [Concomitant]
     Indication: MOTOR DYSFUNCTION
     Dosage: 2 MG, DAILY
  11. CITALOPRAM [Concomitant]
     Indication: MOTOR DYSFUNCTION
     Dosage: 20 MG, DAILY

REACTIONS (4)
  - Somatic delusion [Recovering/Resolving]
  - Delusion [Recovering/Resolving]
  - Sensation of foreign body [Recovering/Resolving]
  - Hallucination, visual [Recovering/Resolving]
